FAERS Safety Report 9783234 (Version 6)
Quarter: 2014Q1

REPORT INFORMATION
  Report Type: Spontaneous
  Country: IT (occurrence: IT)
  Receive Date: 20131226
  Receipt Date: 20140221
  Transmission Date: 20141002
  Serious: Yes (Hospitalization, Other)
  Sender: FDA-Public Use
  Company Number: IT-PFIZER INC-2013367352

PATIENT
  Age: 54 Year
  Sex: Female

DRUGS (3)
  1. ALPRAZOLAM [Suspect]
     Dosage: 25 DF, SINGLE
     Route: 048
     Dates: start: 20131106, end: 20131106
  2. ALPRAZOLAM [Concomitant]
     Dosage: 0.5 MG, 1X/DAY (IN THE EVENING)
     Route: 048
  3. CITALOPRAM [Concomitant]
     Dosage: 20 MG, 1X/DAY (IN THE MORNING)
     Route: 048

REACTIONS (3)
  - Intentional self-injury [Not Recovered/Not Resolved]
  - Sopor [Not Recovered/Not Resolved]
  - Drug abuse [Not Recovered/Not Resolved]
